FAERS Safety Report 10411089 (Version 1)
Quarter: 2014Q2

REPORT INFORMATION
  Report Type: Spontaneous
  Country: US (occurrence: None)
  Receive Date: 20140514
  Receipt Date: 20140514
  Transmission Date: 20141212
  Serious: Yes (Hospitalization)
  Sender: FDA-Public Use
  Company Number: 098766U

PATIENT
  Age: 23 Year
  Sex: Female
  Weight: 99.8 kg

DRUGS (3)
  1. CIMZIA [Suspect]
     Indication: CROHN^S DISEASE
     Route: 058
     Dates: start: 20130813, end: 2013
  2. 6-MP [Concomitant]
  3. ENTOCORT [Concomitant]

REACTIONS (4)
  - Small intestinal obstruction [None]
  - Nausea [None]
  - Vomiting [None]
  - Drug dose omission [None]
